FAERS Safety Report 22341289 (Version 1)
Quarter: 2023Q2

REPORT INFORMATION
  Report Type: Spontaneous
  Country: US (occurrence: US)
  Receive Date: 20230518
  Receipt Date: 20230518
  Transmission Date: 20230721
  Serious: No
  Sender: FDA-Public Use
  Company Number: US-INSUD PHARMA-2305US02863

PATIENT

DRUGS (1)
  1. SLYND [Suspect]
     Active Substance: DROSPIRENONE
     Indication: Uterine leiomyoma
     Dosage: UNK
     Route: 048

REACTIONS (2)
  - Heavy menstrual bleeding [Not Recovered/Not Resolved]
  - Intentional product use issue [Unknown]
